FAERS Safety Report 6456017-9 (Version None)
Quarter: 2009Q4

REPORT INFORMATION
  Report Type: 
  Country: None (occurrence: None)
  Receive Date: 20091119
  Receipt Date: 20080207
  Transmission Date: 20100525
  Serious: Yes (Other)
  Sender: FDA-Public Use
  Company Number: DSM-2009-01701

PATIENT
  Age: 35 Year
  Sex: Female
  Weight: 120 kg

DRUGS (1)
  1. OLMESARTAN MEDOXOMIL [Suspect]
     Indication: HYPERTENSION
     Dosage: 20 MG 920 MG, 1 IN 1 D), ORAL
     Route: 048
     Dates: start: 20070414, end: 20080102

REACTIONS (1)
  - ERYTHEMA [None]
